FAERS Safety Report 19894938 (Version 1)
Quarter: 2021Q3

REPORT INFORMATION
  Report Type: Report from Study
  Country: CA (occurrence: CA)
  Receive Date: 20210929
  Receipt Date: 20210929
  Transmission Date: 20211014
  Serious: Yes (Other)
  Sender: FDA-Public Use
  Company Number: NVSC2020CA045642

PATIENT
  Age: 12 Year
  Sex: Male

DRUGS (2)
  1. JADENU [Suspect]
     Active Substance: DEFERASIROX
     Indication: ANAEMIA
     Dosage: 360 MG, QD
     Route: 048
     Dates: start: 20200215
  2. JADENU [Suspect]
     Active Substance: DEFERASIROX
     Indication: IRON OVERLOAD
     Dosage: 180 MG, QD
     Route: 048
     Dates: start: 20200207, end: 20200523

REACTIONS (7)
  - Decreased appetite [Unknown]
  - Sleep disorder [Unknown]
  - Drug intolerance [Not Recovered/Not Resolved]
  - Weight decreased [Unknown]
  - Abdominal pain [Unknown]
  - Muscle spasms [Unknown]
  - Eructation [Unknown]

NARRATIVE: CASE EVENT DATE: 202002
